FAERS Safety Report 6144690-4 (Version None)
Quarter: 2009Q2

REPORT INFORMATION
  Report Type: 
  Country: None (occurrence: None)
  Receive Date: 20090406
  Receipt Date: 20090401
  Transmission Date: 20091009
  Serious: Yes (Other)
  Sender: FDA-Public Use
  Company Number: B0565505A

PATIENT
  Age: 43 Year
  Sex: Male
  Weight: 74 kg

DRUGS (3)
  1. CURAN [Suspect]
     Indication: PROPHYLAXIS
     Dosage: 50MG PER DAY
     Route: 042
  2. MIDAZOLAM HCL [Concomitant]
     Dosage: 2MG PER DAY
     Route: 030
  3. GLYCOPYRROLATE [Concomitant]
     Dosage: .2MG PER DAY

REACTIONS (14)
  - ALTERED STATE OF CONSCIOUSNESS [None]
  - ANAPHYLACTIC REACTION [None]
  - ASPHYXIA [None]
  - COGNITIVE DISORDER [None]
  - DYSPNOEA [None]
  - ERYTHEMA [None]
  - EYE MOVEMENT DISORDER [None]
  - HYPERHIDROSIS [None]
  - HYPOTENSION [None]
  - NAUSEA [None]
  - PAIN [None]
  - URTICARIA [None]
  - VITAL FUNCTIONS ABNORMAL [None]
  - VOMITING [None]
